FAERS Safety Report 20155487 (Version 3)
Quarter: 2024Q4

REPORT INFORMATION
  Report Type: Report from Study
  Country: US (occurrence: US)
  Receive Date: 20211207
  Receipt Date: 20241219
  Transmission Date: 20250115
  Serious: Yes (Hospitalization, Other)
  Sender: TAKEDA
  Company Number: US-TAKEDA-2021TUS002524

PATIENT
  Age: 79 Year
  Sex: Female

DRUGS (2)
  1. VEDOLIZUMAB [Suspect]
     Active Substance: VEDOLIZUMAB
     Indication: Crohn^s disease
     Dosage: 300 MILLIGRAM
  2. VEDOLIZUMAB [Suspect]
     Active Substance: VEDOLIZUMAB
     Indication: Abscess intestinal
     Dosage: 300 MILLIGRAM, Q6WEEKS
     Dates: start: 20211018

REACTIONS (20)
  - Cellulitis [Not Recovered/Not Resolved]
  - Multiple fractures [Unknown]
  - Fall [Unknown]
  - Influenza like illness [Recovered/Resolved]
  - Dysgeusia [Unknown]
  - Tongue discomfort [Unknown]
  - Diarrhoea [Recovered/Resolved]
  - Anal incontinence [Recovered/Resolved]
  - Gastrointestinal sounds abnormal [Recovered/Resolved]
  - Pain [Recovered/Resolved]
  - Tongue fungal infection [Not Recovered/Not Resolved]
  - Contusion [Not Recovered/Not Resolved]
  - Skin laceration [Not Recovered/Not Resolved]
  - Off label use [Unknown]
  - Blood bilirubin increased [Not Recovered/Not Resolved]
  - Abdominal distension [Recovered/Resolved]
  - Flatulence [Recovered/Resolved]
  - Arthralgia [Recovered/Resolved]
  - Pruritus [Unknown]
  - Fatigue [Recovered/Resolved]

NARRATIVE: CASE EVENT DATE: 20210107
